FAERS Safety Report 14814518 (Version 2)
Quarter: 2018Q3

REPORT INFORMATION
  Report Type: Spontaneous
  Country: US (occurrence: US)
  Receive Date: 20180426
  Receipt Date: 20180817
  Transmission Date: 20181010
  Serious: Yes (Hospitalization, Disabling, Other)
  Sender: FDA-Public Use
  Company Number: US-GUERBET-US-20180110

PATIENT
  Age: 40 Year
  Sex: Male

DRUGS (6)
  1. OPTIMARK [Suspect]
     Active Substance: GADOVERSETAMIDE
     Route: 042
     Dates: start: 20170731, end: 20170731
  2. OPTIMARK [Suspect]
     Active Substance: GADOVERSETAMIDE
     Indication: NUCLEAR MAGNETIC RESONANCE IMAGING
     Route: 042
     Dates: start: 20180117, end: 20180117
  3. OPTIMARK [Suspect]
     Active Substance: GADOVERSETAMIDE
     Dosage: NON?MEDICALLY CONFIRMED ADMINISTRATION IN 2016
     Route: 065
     Dates: start: 2016, end: 2016
  4. OPTIMARK [Suspect]
     Active Substance: GADOVERSETAMIDE
     Route: 042
     Dates: start: 20130918, end: 20130918
  5. OPTIMARK [Suspect]
     Active Substance: GADOVERSETAMIDE
     Dosage: NON?MEDICALLY CONFIRMED ADMINISTRATION IN 2007
     Route: 065
     Dates: start: 2007, end: 2007
  6. OPTIMARK [Suspect]
     Active Substance: GADOVERSETAMIDE
     Dosage: NON?MEDICALLY CONFIRMED ADMINISTRATION IN 2015
     Route: 065
     Dates: start: 2015, end: 2015

REACTIONS (4)
  - Toxicity to various agents [Not Recovered/Not Resolved]
  - Pain in extremity [Not Recovered/Not Resolved]
  - Medication residue present [Not Recovered/Not Resolved]
  - Dyspnoea [Not Recovered/Not Resolved]

NARRATIVE: CASE EVENT DATE: 20180117
